FAERS Safety Report 15693522 (Version 4)
Quarter: 2025Q1

REPORT INFORMATION
  Report Type: Spontaneous
  Country: PL (occurrence: PL)
  Receive Date: 20181206
  Receipt Date: 20250214
  Transmission Date: 20250408
  Serious: Yes (Hospitalization, Other)
  Sender: AUROBINDO
  Company Number: PL-AUROBINDO-AUR-APL-2018-058974

PATIENT
  Age: 42 Year
  Sex: Female

DRUGS (4)
  1. ACETAMINOPHEN [Suspect]
     Active Substance: ACETAMINOPHEN
     Indication: Respiratory tract infection
     Route: 065
  2. DEXTROMETHORPHAN [Suspect]
     Active Substance: DEXTROMETHORPHAN
     Indication: Respiratory tract infection
     Route: 065
  3. PSEUDOEPHEDRINE [Suspect]
     Active Substance: PSEUDOEPHEDRINE
     Indication: Respiratory tract infection
     Route: 065
  4. CIPROFLOXACIN [Suspect]
     Active Substance: CIPROFLOXACIN
     Indication: Respiratory tract infection
     Route: 065

REACTIONS (3)
  - Acute generalised exanthematous pustulosis [Recovered/Resolved]
  - Eyelid function disorder [Unknown]
  - Chills [Unknown]
